FAERS Safety Report 19080661 (Version 1)
Quarter: 2021Q1

REPORT INFORMATION
  Report Type: Spontaneous
  Country: BR (occurrence: BR)
  Receive Date: 20210331
  Receipt Date: 20210331
  Transmission Date: 20210420
  Serious: Yes (Other)
  Sender: FDA-Public Use
  Company Number: BR-AMERICAN REGENT INC-2021000762

PATIENT
  Sex: Male

DRUGS (3)
  1. MALTOFER                           /00023548/ [Suspect]
     Active Substance: IRON POLYMALTOSE
     Indication: ANAEMIA
     Dosage: UNK
     Route: 048
  2. MALTOFER                           /00023548/ [Suspect]
     Active Substance: IRON POLYMALTOSE
     Indication: ANAEMIA
     Dosage: UNK
     Route: 048
  3. VENOFER [Suspect]
     Active Substance: IRON SUCROSE
     Indication: ANAEMIA
     Dosage: UNK
     Route: 042

REACTIONS (4)
  - Metabolic surgery [Unknown]
  - Serum ferritin decreased [Unknown]
  - Product availability issue [Unknown]
  - Drug dependence [Unknown]
